FAERS Safety Report 5077928-5 (Version None)
Quarter: 2006Q3

REPORT INFORMATION
  Report Type: 
  Country: None (occurrence: None)
  Receive Date: 20060808
  Receipt Date: 20060725
  Transmission Date: 20061208
  Serious: Yes (Other)
  Sender: FDA-Public Use
  Company Number: CAN-2006-0000327

PATIENT
  Age: 70 Year
  Sex: Female

DRUGS (4)
  1. MORPHINE SULFATE [Suspect]
     Indication: PAIN
  2. CODEINE (CODEINE) [Suspect]
     Indication: PAIN
     Dosage: ORAL
     Route: 048
  3. FENTANYL [Suspect]
  4. MEPERIDINE HCL [Suspect]
     Dosage: 50 MG, TID, ORAL
     Route: 048

REACTIONS (4)
  - CONFUSIONAL STATE [None]
  - LOSS OF CONSCIOUSNESS [None]
  - PARALYSIS [None]
  - UNEVALUABLE EVENT [None]
